FAERS Safety Report 8386198-1 (Version None)
Quarter: 2012Q2

REPORT INFORMATION
  Report Type: 
  Country: None (occurrence: None)
  Receive Date: 20120523
  Receipt Date: 20120509
  Transmission Date: 20120825
  Serious: Yes (Hospitalization, Disabling)
  Sender: FDA-Public Use
  Company Number: CH-2012-1967

PATIENT
  Age: 68 Year
  Sex: Female
  Weight: 63 kg

DRUGS (2)
  1. CARBOPLATIN [Suspect]
     Indication: LUNG CANCER METASTATIC
  2. NAVELBINE [Suspect]
     Indication: LUNG CANCER METASTATIC
     Dosage: 25 MG/M2 IV
     Route: 042
     Dates: start: 20120319, end: 20120402

REACTIONS (4)
  - DIPLOPIA [None]
  - IIIRD NERVE DISORDER [None]
  - IIIRD NERVE PARALYSIS [None]
  - METASTASES TO MENINGES [None]
